FAERS Safety Report 23943803 (Version 1)
Quarter: 2024Q2

REPORT INFORMATION
  Report Type: Spontaneous
  Country: SE (occurrence: SE)
  Receive Date: 20240606
  Receipt Date: 20240606
  Transmission Date: 20240715
  Serious: Yes (Other)
  Sender: FDA-Public Use
  Company Number: None

PATIENT
  Age: 49 Year
  Sex: Female

DRUGS (6)
  1. FLUOXETINE [Suspect]
     Active Substance: FLUOXETINE HYDROCHLORIDE
     Indication: Product used for unknown indication
  2. FELODIPINE [Concomitant]
     Active Substance: FELODIPINE
     Dosage: STRENGTH: 2.5 MG
  3. OXYCODONE HYDROCHLORIDE [Concomitant]
     Active Substance: OXYCODONE HYDROCHLORIDE
     Dosage: STRENGTH: OXYCODONE 4.48 MG, OXYCODONE HYDROCHLORIDE 5 MG
  4. BUPROPION HYDROCHLORIDE [Concomitant]
     Active Substance: BUPROPION HYDROCHLORIDE
     Dosage: STRENGTH: BUPROPION HYDROCHLORIDE 300 MG, BUPROPION 260.4 MG
  5. AMITRIPTYLINE [Concomitant]
     Active Substance: AMITRIPTYLINE
     Dosage: STRENGTH: AMITRIPTYLINE HYDROCHLORIDE 28.28 MG, AMITRIPTYLINE 25 MG
  6. METOPROLOL [Concomitant]
     Active Substance: METOPROLOL
     Dosage: STRENGTH: METOPROLOL 19.5 MG, METOPROLOL TARTRATE 25 MG, METOPROLOL SUCCINATE 190 MG

REACTIONS (2)
  - Dyspepsia [Recovering/Resolving]
  - Epigastric discomfort [Recovering/Resolving]

NARRATIVE: CASE EVENT DATE: 20240401
